FAERS Safety Report 8458768-3 (Version None)
Quarter: 2012Q2

REPORT INFORMATION
  Report Type: 
  Country: None (occurrence: None)
  Receive Date: 20120622
  Receipt Date: 20120618
  Transmission Date: 20120825
  Serious: Yes (Hospitalization, Other)
  Sender: FDA-Public Use
  Company Number: US-AMGEN-KDL443985

PATIENT
  Age: 52 Year
  Sex: Female
  Weight: 48.991 kg

DRUGS (6)
  1. PROCRIT [Suspect]
     Indication: PRODUCT USED FOR UNKNOWN INDICATION
     Dosage: 40000 IU, QWK
     Route: 058
     Dates: start: 20100401
  2. NEUPOGEN [Suspect]
     Indication: PRODUCT USED FOR UNKNOWN INDICATION
     Dosage: 300 MUG, QWK
     Route: 058
     Dates: start: 20100101
  3. RIBAVIRIN [Concomitant]
     Dosage: 200 MG, QD
     Route: 048
  4. RIBAVIRIN [Concomitant]
     Dosage: 800 MG, QD
     Route: 048
  5. INTERFERON [Concomitant]
     Dosage: 180 IU, QWK
     Route: 058
  6. LEVOTHYROXINE SODIUM [Concomitant]
     Dosage: .25 MG, QD
     Route: 048
     Dates: start: 20100101

REACTIONS (5)
  - LIMB DISCOMFORT [None]
  - DRUG INEFFECTIVE [None]
  - INJECTION SITE ERYTHEMA [None]
  - HAEMOGLOBIN DECREASED [None]
  - INJECTION SITE HAEMATOMA [None]
